FAERS Safety Report 13374174 (Version 1)
Quarter: 2017Q1

REPORT INFORMATION
  Report Type: Spontaneous
  Country: None (occurrence: US)
  Receive Date: 20170325
  Receipt Date: 20170325
  Transmission Date: 20170429
  Serious: Yes (Hospitalization)
  Sender: FDA-Public Use
  Company Number: None

PATIENT
  Age: 36 Year
  Sex: Female
  Weight: 75 kg

DRUGS (1)
  1. CISPLATIN. [Suspect]
     Active Substance: CISPLATIN
     Dates: end: 20170109

REACTIONS (8)
  - Nausea [None]
  - Haemoglobin decreased [None]
  - Abdominal pain [None]
  - Uterine perforation [None]
  - Retching [None]
  - White blood cell count decreased [None]
  - Pain [None]
  - Unresponsive to stimuli [None]

NARRATIVE: CASE EVENT DATE: 20170127
